FAERS Safety Report 15333034 (Version 3)
Quarter: 2019Q1

REPORT INFORMATION
  Report Type: Report from Study
  Country: None (occurrence: US)
  Receive Date: 20180830
  Receipt Date: 20190104
  Transmission Date: 20190417
  Serious: Yes (Other)
  Sender: FDA-Public Use
  Company Number: US-ABBVIE-18K-163-2464024-00

PATIENT
  Age: 47 Year
  Sex: Male

DRUGS (2)
  1. HUMIRA [Suspect]
     Active Substance: ADALIMUMAB
     Indication: PSORIASIS
     Route: 058
     Dates: start: 201805, end: 2018
  2. HUMIRA [Suspect]
     Active Substance: ADALIMUMAB
     Route: 058
     Dates: start: 2018, end: 201808

REACTIONS (20)
  - Seizure [Unknown]
  - Malaise [Unknown]
  - Vomiting [Unknown]
  - Drug ineffective [Not Recovered/Not Resolved]
  - Diarrhoea haemorrhagic [Unknown]
  - Dehydration [Unknown]
  - Emotional distress [Unknown]
  - Psoriasis [Unknown]
  - Impaired quality of life [Unknown]
  - Urticaria [Unknown]
  - General physical condition abnormal [Unknown]
  - Decreased appetite [Unknown]
  - Pain of skin [Not Recovered/Not Resolved]
  - Helplessness [Unknown]
  - Skin irritation [Not Recovered/Not Resolved]
  - Insomnia [Unknown]
  - Frustration tolerance decreased [Unknown]
  - Fatigue [Unknown]
  - Nausea [Unknown]
  - Injection site pain [Unknown]

NARRATIVE: CASE EVENT DATE: 2018
